FAERS Safety Report 9298484 (Version 1)
Quarter: 2013Q2

REPORT INFORMATION
  Report Type: Spontaneous
  Country: US (occurrence: US)
  Receive Date: 20130520
  Receipt Date: 20130520
  Transmission Date: 20140414
  Serious: No
  Sender: FDA-Public Use
  Company Number: US-BAYER-2013-060652

PATIENT
  Age: 14 Year
  Sex: Female
  Weight: 72.56 kg

DRUGS (1)
  1. ALEVE TABLET [Suspect]
     Indication: EMOTIONAL DISTRESS
     Dosage: 13 DF, UNK
     Route: 048
     Dates: start: 20130512

REACTIONS (2)
  - Overdose [None]
  - Vomiting [Not Recovered/Not Resolved]
